FAERS Safety Report 13068605 (Version 1)
Quarter: 2016Q4

REPORT INFORMATION
  Report Type: Spontaneous
  Country: US (occurrence: US)
  Receive Date: 20161228
  Receipt Date: 20161228
  Transmission Date: 20170207
  Serious: Yes (Other)
  Sender: FDA-Public Use
  Company Number: US-MYLANLABS-2016M1057236

PATIENT

DRUGS (15)
  1. LEVOTHYROXINE SODIUM. [Concomitant]
     Active Substance: LEVOTHYROXINE SODIUM
     Indication: HYPOTHYROIDISM
     Dosage: INITIAL DOSE NOT STATED
     Route: 065
  2. FLUOXETINE [Concomitant]
     Active Substance: FLUOXETINE HYDROCHLORIDE
     Indication: POST-TRAUMATIC STRESS DISORDER
     Dosage: 10 MG, GRADUALLY INCREASED TO 40 MG
     Route: 065
  3. PRAZOSIN [Concomitant]
     Active Substance: PRAZOSIN
     Dosage: 3MG AT BEDTIME, AND A MORNING DOSE OF 1MG WAS ADDED LATER
     Route: 065
  4. MELATONIN [Concomitant]
     Active Substance: MELATONIN
     Indication: INSOMNIA
     Dosage: 3MG AT BEDTIME, DOSE WAS INCREASED TO 6 MG
     Route: 065
  5. LITHIUM. [Suspect]
     Active Substance: LITHIUM
     Indication: HYPOMANIA
     Dosage: GRADUALLY TITRATED UP TO 900 MG/DAY
     Route: 065
  6. CLONAZEPAM. [Concomitant]
     Active Substance: CLONAZEPAM
     Indication: ANXIETY
     Dosage: 0.25 MG IN THE MORNING AND 0.125 MG AT BEDTIME
     Route: 065
  7. LITHIUM. [Suspect]
     Active Substance: LITHIUM
     Dosage: 900 MG/DAY, REDUCED TO 750 MG DUE TO DIARRHOEA
     Route: 065
  8. METFORMIN [Concomitant]
     Active Substance: METFORMIN HYDROCHLORIDE
     Indication: GLUCOSE TOLERANCE IMPAIRED
     Route: 065
  9. MELATONIN [Concomitant]
     Active Substance: MELATONIN
     Dosage: 6MG IN THE EVENING
     Route: 065
  10. PRAZOSIN [Concomitant]
     Active Substance: PRAZOSIN
     Indication: NIGHTMARE
     Dosage: 1MG AT NIGHT, DOSE INCREASED TO 3 MG
     Route: 065
  11. ARIPIPRAZOLE. [Concomitant]
     Active Substance: ARIPIPRAZOLE
     Indication: PRODUCT USED FOR UNKNOWN INDICATION
     Dosage: 10 MG
     Route: 065
  12. LEVOTHYROXINE SODIUM. [Concomitant]
     Active Substance: LEVOTHYROXINE SODIUM
     Dosage: DOSE INCREASED TO 37.5 MICROG
     Route: 065
  13. LITHIUM. [Suspect]
     Active Substance: LITHIUM
     Dosage: 750 MG/DAY, EVENTUALLY RE-ESTABLISHED AT 900 MG/DAY ONCE THE DIARRHOEA HAD SUBSIDED
     Route: 065
  14. LEVOMEFOLIC ACID [Concomitant]
     Active Substance: LEVOMEFOLIC ACID
     Indication: HYPOTHYROIDISM
     Dosage: 15 MG
     Route: 065
  15. FLUOXETINE [Concomitant]
     Active Substance: FLUOXETINE HYDROCHLORIDE
     Dosage: 40 MG DAILY
     Route: 065

REACTIONS (2)
  - Diarrhoea [Unknown]
  - Autoimmune thyroiditis [Unknown]
